FAERS Safety Report 24025094 (Version 1)
Quarter: 2024Q2

REPORT INFORMATION
  Report Type: Report from Study
  Country: TR (occurrence: TR)
  Receive Date: 20240628
  Receipt Date: 20240628
  Transmission Date: 20240715
  Serious: No
  Sender: FDA-Public Use
  Company Number: TR-ROCHE-3552901

PATIENT
  Age: 75 Year
  Sex: Male

DRUGS (4)
  1. ALECTINIB [Suspect]
     Active Substance: ALECTINIB
     Indication: Non-small cell lung cancer
     Route: 048
     Dates: start: 20220106
  2. TOLTERODINE [Concomitant]
     Active Substance: TOLTERODINE
     Indication: Benign prostatic hyperplasia
     Route: 048
     Dates: start: 20210103
  3. SILODOSIN [Concomitant]
     Active Substance: SILODOSIN
     Indication: Bladder dysfunction
     Route: 048
     Dates: start: 20210603
  4. ALECTINIB [Concomitant]
     Active Substance: ALECTINIB
     Indication: Lung neoplasm malignant
     Dates: start: 20200316

REACTIONS (1)
  - White blood cell count increased [Not Recovered/Not Resolved]

NARRATIVE: CASE EVENT DATE: 20221212
